FAERS Safety Report 22672167 (Version 2)
Quarter: 2025Q3

REPORT INFORMATION
  Report Type: Report from Study
  Country: US (occurrence: US)
  Receive Date: 20230705
  Receipt Date: 20250828
  Transmission Date: 20251020
  Serious: Yes (Other)
  Sender: NOVARTIS
  Company Number: US-002147023-NVSC2023US148214

PATIENT
  Sex: Male
  Weight: 53.07 kg

DRUGS (20)
  1. COSENTYX [Suspect]
     Active Substance: SECUKINUMAB
     Indication: Psoriatic arthropathy
     Route: 065
  2. METHOTREXATE [Suspect]
     Active Substance: METHOTREXATE
     Indication: Product used for unknown indication
     Route: 065
  3. GABAPENTIN [Suspect]
     Active Substance: GABAPENTIN
     Indication: Psoriatic arthropathy
     Route: 065
  4. TACROLIMUS [Suspect]
     Active Substance: TACROLIMUS
     Indication: Psoriatic arthropathy
     Route: 065
  5. ZOLPIDEM [Suspect]
     Active Substance: ZOLPIDEM TARTRATE
     Indication: Psoriatic arthropathy
     Route: 065
  6. METFORMIN [Suspect]
     Active Substance: METFORMIN HYDROCHLORIDE
     Indication: Psoriatic arthropathy
     Route: 065
  7. ETODOLAC [Suspect]
     Active Substance: ETODOLAC
     Indication: Psoriatic arthropathy
     Route: 065
  8. FLUOCINONIDE [Suspect]
     Active Substance: FLUOCINONIDE
     Indication: Psoriatic arthropathy
     Route: 065
  9. HALOBETASOL [Suspect]
     Active Substance: HALOBETASOL
     Indication: Psoriatic arthropathy
     Route: 065
  10. ISONIAZID [Suspect]
     Active Substance: ISONIAZID
     Indication: Psoriatic arthropathy
     Route: 065
  11. CELECOXIB [Suspect]
     Active Substance: CELECOXIB
     Indication: Psoriatic arthropathy
     Route: 065
  12. NABUMETONE [Suspect]
     Active Substance: NABUMETONE
     Indication: Psoriatic arthropathy
     Route: 065
  13. METHADONE [Suspect]
     Active Substance: METHADONE HYDROCHLORIDE
     Indication: Psoriatic arthropathy
     Route: 065
  14. FOLIC ACID [Suspect]
     Active Substance: FOLIC ACID
     Indication: Psoriatic arthropathy
     Route: 065
  15. MORPHINE [Suspect]
     Active Substance: MORPHINE
     Indication: Psoriatic arthropathy
     Route: 065
  16. GLYBURIDE [Suspect]
     Active Substance: GLYBURIDE
     Indication: Psoriatic arthropathy
     Route: 065
  17. HYDROCODONE [Suspect]
     Active Substance: HYDROCODONE
     Indication: Psoriatic arthropathy
     Route: 065
  18. NORFLEX [Concomitant]
     Active Substance: ORPHENADRINE CITRATE
     Indication: Product used for unknown indication
     Route: 065
  19. NORFLEX [Concomitant]
     Active Substance: ORPHENADRINE CITRATE
     Route: 065
  20. VITAMIN D [Concomitant]
     Active Substance: VITAMIN D NOS
     Indication: Product used for unknown indication
     Route: 065

REACTIONS (19)
  - Syringomyelia [Unknown]
  - Psoriatic arthropathy [Unknown]
  - COVID-19 [Unknown]
  - Arthralgia [Unknown]
  - Back pain [Unknown]
  - Sciatica [Unknown]
  - Musculoskeletal stiffness [Unknown]
  - Vitamin D decreased [Unknown]
  - Antinuclear antibody positive [Unknown]
  - Pyuria [Unknown]
  - Blood urea decreased [Unknown]
  - C-reactive protein increased [Unknown]
  - Nitrite urine present [Unknown]
  - White blood cells urine positive [Unknown]
  - Interferon gamma release assay positive [Unknown]
  - Psoriasis [Unknown]
  - Skin lesion [Unknown]
  - Product use in unapproved indication [Unknown]
  - Therapeutic product effect incomplete [Unknown]
